FAERS Safety Report 7803227-1 (Version None)
Quarter: 2011Q4

REPORT INFORMATION
  Report Type: 
  Country: None (occurrence: None)
  Receive Date: 20111007
  Receipt Date: 20111003
  Transmission Date: 20120403
  Serious: Yes (Other)
  Sender: FDA-Public Use
  Company Number: CHPA2011US12426

PATIENT
  Age: 49 Year
  Sex: Male

DRUGS (1)
  1. LAMISIL AT CONTINUOUS SPRAY, JOCK ITCH [Suspect]
     Indication: TINEA CRURIS
     Dosage: 1 DF, QD
     Route: 061
     Dates: start: 20110101, end: 20110901

REACTIONS (3)
  - DYSGEUSIA [None]
  - AGEUSIA [None]
  - INCORRECT DRUG ADMINISTRATION DURATION [None]
